FAERS Safety Report 13327381 (Version 1)
Quarter: 2017Q1

REPORT INFORMATION
  Report Type: Spontaneous
  Country: US (occurrence: US)
  Receive Date: 20170313
  Receipt Date: 20170313
  Transmission Date: 20170428
  Serious: No
  Sender: FDA-Public Use
  Company Number: US-JNJFOC-20161223267

PATIENT
  Age: 39 Year
  Sex: Male
  Weight: 88.45 kg

DRUGS (3)
  1. MENS ROGAINE EXTRA STRENGTH [Suspect]
     Active Substance: MINOXIDIL
     Route: 061
  2. HEAD AND SHOULDERS [Suspect]
     Active Substance: PYRITHIONE ZINC
     Indication: PRODUCT USED FOR UNKNOWN INDICATION
     Dosage: 4-5 TIMES
     Route: 065
  3. MENS ROGAINE EXTRA STRENGTH [Suspect]
     Active Substance: MINOXIDIL
     Indication: ALOPECIA
     Dosage: 4-5 TIMES
     Route: 061

REACTIONS (1)
  - Pruritus [Unknown]
